FAERS Safety Report 24533491 (Version 2)
Quarter: 2025Q1

REPORT INFORMATION
  Report Type: Spontaneous
  Country: FR (occurrence: FR)
  Receive Date: 20241022
  Receipt Date: 20250123
  Transmission Date: 20250409
  Serious: Yes (Other)
  Sender: PFIZER
  Company Number: None

PATIENT
  Age: 56 Year
  Sex: Female
  Weight: 83 kg

DRUGS (6)
  1. CLINDAMYCIN HYDROCHLORIDE [Suspect]
     Active Substance: CLINDAMYCIN HYDROCHLORIDE
     Indication: Infection
     Dosage: 2400 MG, DAILY
     Route: 048
     Dates: start: 20240311, end: 20240316
  2. TYGACIL [Suspect]
     Active Substance: TIGECYCLINE
     Indication: Infection
     Dosage: 100 MG, DAILY
     Route: 042
     Dates: start: 20240225, end: 20240309
  3. LANSOPRAZOLE [Suspect]
     Active Substance: LANSOPRAZOLE
     Indication: Prophylaxis against gastrointestinal ulcer
     Dosage: 15 MG, DAILY
     Route: 048
     Dates: start: 20240306, end: 20240324
  4. PIPERACILLIN AND TAZOBACTAM [Suspect]
     Active Substance: PIPERACILLIN SODIUM\TAZOBACTAM SODIUM
     Indication: Infection
     Dosage: 16 G, DAILY
     Route: 042
     Dates: start: 20240311, end: 20240313
  5. FERINJECT [Suspect]
     Active Substance: FERRIC CARBOXYMALTOSE
     Indication: Iron deficiency anaemia
     Dosage: 1 G, DAILY
     Route: 042
     Dates: start: 20240312, end: 20240312
  6. BACTRIM [Suspect]
     Active Substance: SULFAMETHOXAZOLE\TRIMETHOPRIM
     Indication: Infection
     Dosage: 6 DF, DAILY
     Route: 042
     Dates: start: 20240225, end: 20240309

REACTIONS (1)
  - Toxic skin eruption [Recovered/Resolved]

NARRATIVE: CASE EVENT DATE: 20240312
